FAERS Safety Report 5088119-6 (Version None)
Quarter: 2006Q3

REPORT INFORMATION
  Report Type: 
  Country: None (occurrence: None)
  Receive Date: 20060821
  Receipt Date: 20060807
  Transmission Date: 20061208
  Serious: Yes (Death)
  Sender: FDA-Public Use
  Company Number: 2005071948

PATIENT
  Age: 71 Year
  Sex: Female
  Weight: 63.5036 kg

DRUGS (7)
  1. CELEBREX [Suspect]
     Indication: ARTHRITIS
     Dosage: 400 MG (200 MG, 2 IN 1 D)
     Dates: start: 20000101, end: 20030426
  2. SECTRAL [Concomitant]
  3. VASOTEC [Concomitant]
  4. LOTREL [Concomitant]
  5. XANAX [Concomitant]
  6. DARVOCET (DEXTROPROXYPHENE NASPILATE, PARACETAMOL) [Concomitant]
  7. HYDROCHLOROTHIAZIDE [Concomitant]

REACTIONS (2)
  - CAROTID ARTERY STENOSIS [None]
  - MYOCARDIAL INFARCTION [None]
